FAERS Safety Report 14821494 (Version 1)
Quarter: 2018Q2

REPORT INFORMATION
  Report Type: Spontaneous
  Country: DE (occurrence: DE)
  Receive Date: 20180427
  Receipt Date: 20180427
  Transmission Date: 20180711
  Serious: Yes (Hospitalization)
  Sender: FDA-Public Use
  Company Number: DE-AUROBINDO-AUR-APL-2018-022022

PATIENT
  Age: 83 Year
  Sex: Female
  Weight: 55 kg

DRUGS (6)
  1. LEVOMEPROMAZINE [Suspect]
     Active Substance: LEVOMEPROMAZINE
     Indication: PRODUCT USED FOR UNKNOWN INDICATION
     Dosage: 25 MG, 0-0-0-1, TABLETTEN
     Route: 048
  2. LEVOTHYROXINE SODIUM. [Concomitant]
     Active Substance: LEVOTHYROXINE SODIUM
     Indication: PRODUCT USED FOR UNKNOWN INDICATION
     Dosage: 100 ?G, 1-0-0-0, TABLETTEN ()
     Route: 048
  3. RISPERIDONE FILM-COATED TABLET [Suspect]
     Active Substance: RISPERIDONE
     Indication: PRODUCT USED FOR UNKNOWN INDICATION
     Dosage: 1 MG, 1-0-0-0, TABLETTEN
     Route: 048
  4. AMANTADIN                          /00055901/ [Suspect]
     Active Substance: AMANTADINE
     Indication: PRODUCT USED FOR UNKNOWN INDICATION
     Dosage: 100 MG, 1-0-0-0.5, TABLETTEN
     Route: 048
  5. CINNARIZIN DIMENHYDRINAT [Concomitant]
     Indication: PRODUCT USED FOR UNKNOWN INDICATION
     Dosage: 20|40 MG, 1-1-1-0, TABLETTEN
     Route: 048
  6. RAMIPRIL. [Concomitant]
     Active Substance: RAMIPRIL
     Indication: PRODUCT USED FOR UNKNOWN INDICATION
     Dosage: 5 MG, 0.5-0-0-0, TABLETTEN
     Route: 048

REACTIONS (14)
  - Electrocardiogram QT prolonged [Unknown]
  - Fatigue [Unknown]
  - C-reactive protein increased [None]
  - Blood potassium decreased [None]
  - Musculoskeletal pain [Unknown]
  - Fall [Unknown]
  - General physical health deterioration [Unknown]
  - Dry skin [Unknown]
  - Atrioventricular block second degree [Unknown]
  - Dehydration [Unknown]
  - Tremor [Unknown]
  - White blood cell count increased [None]
  - Bradycardia [Unknown]
  - Weight decreased [Unknown]
